FAERS Safety Report 8912436 (Version 2)
Quarter: 2014Q2

REPORT INFORMATION
  Report Type: Spontaneous
  Country: US (occurrence: US)
  Receive Date: 20121115
  Receipt Date: 20131018
  Transmission Date: 20141212
  Serious: Yes (Other)
  Sender: FDA-Public Use
  Company Number: US-PFIZER INC-2012281120

PATIENT
  Age: 9 Month
  Sex: Male

DRUGS (3)
  1. CHLORAMPHENICOL [Suspect]
     Dosage: 75/MG/KG/DAY
  2. NAFCILLIN [Concomitant]
     Dosage: 150 MG/KG/DAY
  3. VANCOMYCIN [Concomitant]
     Dosage: 45 MG/KG/DAY

REACTIONS (9)
  - Lethargy [Unknown]
  - Cyanosis [Unknown]
  - Gastrointestinal sounds abnormal [Unknown]
  - Abdominal distension [Unknown]
  - Coagulopathy [Recovered/Resolved]
  - Thrombocytopenia [Recovered/Resolved]
  - Drug level increased [Unknown]
  - Cardiomyopathy [Recovered/Resolved]
  - Cardiomegaly [Recovered/Resolved]
